FAERS Safety Report 15607597 (Version 1)
Quarter: 2018Q4

REPORT INFORMATION
  Report Type: Spontaneous
  Country: US (occurrence: US)
  Receive Date: 20181112
  Receipt Date: 20181112
  Transmission Date: 20190205
  Serious: Yes (Other)
  Sender: FDA-Public Use
  Company Number: US-BRISTOL-MYERS SQUIBB COMPANY-BMS-2018-104111

PATIENT
  Sex: Female

DRUGS (4)
  1. OPDIVO [Suspect]
     Active Substance: NIVOLUMAB
     Indication: RENAL CELL CARCINOMA
     Dosage: UNK, Q2WK
     Route: 042
  2. MORPHINE [Concomitant]
     Active Substance: MORPHINE
     Indication: PAIN
     Dosage: 60 MG, TID
     Route: 065
  3. OXYCODONE [Concomitant]
     Active Substance: OXYCODONE
     Indication: PAIN
     Route: 065
  4. OPDIVO [Suspect]
     Active Substance: NIVOLUMAB
     Indication: PRODUCT USED FOR UNKNOWN INDICATION
     Dosage: 480 MG, Q4WK
     Route: 042
     Dates: end: 20181009

REACTIONS (12)
  - Asthenia [Unknown]
  - Oral mucosal blistering [Unknown]
  - Fatigue [Unknown]
  - Swelling [Unknown]
  - Wheezing [Unknown]
  - Pain [Unknown]
  - Skin irritation [Unknown]
  - Hypersomnia [Unknown]
  - Dyspnoea [Unknown]
  - Skin disorder [Unknown]
  - Blister [Unknown]
  - Haematochezia [Unknown]
